FAERS Safety Report 5875817-7 (Version None)
Quarter: 2008Q3

REPORT INFORMATION
  Report Type: 
  Country: None (occurrence: None)
  Receive Date: 20080909
  Receipt Date: 20080828
  Transmission Date: 20090109
  Serious: Yes (Other)
  Sender: FDA-Public Use
  Company Number: FR-PFIZER INC-2008066547

PATIENT
  Sex: Female
  Weight: 42 kg

DRUGS (2)
  1. LYRICA [Suspect]
     Indication: NEURALGIA
     Route: 048
     Dates: start: 20080715, end: 20080806
  2. ULTRACET [Concomitant]
     Dosage: DAILY DOSE:225MG
     Route: 048
     Dates: start: 20070521

REACTIONS (2)
  - ERYTHEMA [None]
  - PHOTOSENSITIVITY REACTION [None]
